FAERS Safety Report 9019988 (Version 1)
Quarter: 2013Q1

REPORT INFORMATION
  Report Type: Spontaneous
  Country: US (occurrence: US)
  Receive Date: 20130119
  Receipt Date: 20130119
  Transmission Date: 20140127
  Serious: No
  Sender: FDA-Public Use
  Company Number: US-ALLERGAN-1211693US

PATIENT
  Age: 30 Year
  Sex: Male

DRUGS (1)
  1. BOTOX? [Suspect]
     Indication: MIGRAINE
     Dosage: 50 UNITS, SINGLE
     Route: 030

REACTIONS (2)
  - Incorrect dose administered [Unknown]
  - Syncope [Unknown]
